FAERS Safety Report 7172447-4 (Version None)
Quarter: 2010Q4

REPORT INFORMATION
  Report Type: 
  Country: None (occurrence: None)
  Receive Date: 20101217
  Receipt Date: 20100408
  Transmission Date: 20110411
  Serious: No
  Sender: FDA-Public Use
  Company Number: US-AMGEN-KDL389380

PATIENT

DRUGS (6)
  1. ENBREL [Suspect]
     Indication: RHEUMATOID ARTHRITIS
     Dosage: 50 MG, QWK
     Route: 058
     Dates: start: 20091126
  2. SULFASALAZINE [Concomitant]
     Dosage: 2000 MG, QD
     Route: 048
     Dates: start: 20090301
  3. HYDROXYCHLOROQUINE [Concomitant]
     Dosage: UNK UNK, UNK
     Dates: start: 20090301
  4. METHOTREXATE [Concomitant]
     Dosage: 15 MG, QWK
     Route: 048
     Dates: start: 20081201
  5. HYDROXYCHLOROQUINE SULFATE [Concomitant]
  6. TRAMADOL HCL [Concomitant]

REACTIONS (1)
  - OROPHARYNGEAL PAIN [None]
